FAERS Safety Report 6098300-5 (Version None)
Quarter: 2009Q1

REPORT INFORMATION
  Report Type: 
  Country: None (occurrence: None)
  Receive Date: 20090302
  Receipt Date: 20090220
  Transmission Date: 20090719
  Serious: Yes (Other)
  Sender: FDA-Public Use
  Company Number: US-RANBAXY-2008US-19583

PATIENT

DRUGS (3)
  1. ISOTRETINOIN [Suspect]
     Indication: DRUG USE FOR UNKNOWN INDICATION
     Dosage: 30 MG, QD
     Route: 048
     Dates: start: 20080901, end: 20081121
  2. ISOTRETINOIN [Suspect]
     Dosage: 40 MG, QD
     Route: 048
     Dates: start: 20080901, end: 20081121
  3. HORMONAL SKIN PATCH [Concomitant]
     Indication: CONTRACEPTION
     Dosage: UNK
     Route: 065

REACTIONS (6)
  - ASTHENIA [None]
  - GARDNERELLA INFECTION [None]
  - NAUSEA [None]
  - PREGNANCY [None]
  - TRICHOMONIASIS [None]
  - URINARY TRACT INFECTION [None]
